FAERS Safety Report 18148844 (Version 2)
Quarter: 2020Q3

REPORT INFORMATION
  Report Type: Report from Study
  Country: US (occurrence: US)
  Receive Date: 20200814
  Receipt Date: 20200904
  Transmission Date: 20201103
  Serious: Yes (Other)
  Sender: FDA-Public Use
  Company Number: US-KYOWAKIRIN-2020BKK013050

PATIENT

DRUGS (1)
  1. NOURIANZ [Suspect]
     Active Substance: ISTRADEFYLLINE
     Indication: PARKINSON^S DISEASE
     Dosage: 20 MG
     Route: 048
     Dates: start: 202007, end: 20200806

REACTIONS (7)
  - Nausea [Unknown]
  - Therapy non-responder [Unknown]
  - Dizziness [Unknown]
  - Dyskinesia [Unknown]
  - Insomnia [Unknown]
  - Constipation [Unknown]
  - Hallucination [Unknown]

NARRATIVE: CASE EVENT DATE: 202007
